FAERS Safety Report 24829264 (Version 1)
Quarter: 2025Q1

REPORT INFORMATION
  Report Type: Spontaneous
  Country: KR (occurrence: KR)
  Receive Date: 20250110
  Receipt Date: 20250110
  Transmission Date: 20250409
  Serious: Yes (Other)
  Sender: ORGANON
  Company Number: KR-ORGANON-O2501KOR000476

PATIENT
  Age: 73 Year
  Sex: Female

DRUGS (5)
  1. ATORVASTATIN CALCIUM\EZETIMIBE [Suspect]
     Active Substance: ATORVASTATIN CALCIUM\EZETIMIBE
     Indication: Type IIa hyperlipidaemia
     Dosage: 1 FORMULATION, QD
     Route: 048
     Dates: start: 20161121
  2. SIMVASTATIN [Concomitant]
     Active Substance: SIMVASTATIN
     Indication: Type IIa hyperlipidaemia
     Dosage: 1 FORMULATION QD
     Route: 048
     Dates: start: 20160119, end: 20161120
  3. RANITIDINE HYDROCHLORIDE [Concomitant]
     Active Substance: RANITIDINE HYDROCHLORIDE
     Indication: Gastrooesophageal reflux disease
     Dosage: 150 MILLIGRAM, QD
     Route: 048
     Dates: start: 20160823
  4. S-AMLODIPINE BESYLATE [Concomitant]
     Indication: Essential hypertension
     Dosage: 2.5 MILLIGRAM, QD (UNCOATED TABLET)
     Route: 048
     Dates: start: 20160419
  5. ALMAGATE [Concomitant]
     Active Substance: ALMAGATE
     Indication: Prophylaxis
     Dosage: 500 MILLIGRAM (0.33/DAY) (UNCOATED TABLET)
     Route: 048
     Dates: start: 20161212, end: 20161214

REACTIONS (2)
  - Abscess oral [Recovered/Resolved]
  - Periodontitis [Recovered/Resolved]

NARRATIVE: CASE EVENT DATE: 20161201
